FAERS Safety Report 14177409 (Version 2)
Quarter: 2018Q1

REPORT INFORMATION
  Report Type: Spontaneous
  Country: DE (occurrence: DE)
  Receive Date: 20171110
  Receipt Date: 20180301
  Transmission Date: 20180508
  Serious: Yes (Other)
  Sender: FDA-Public Use
  Company Number: DE-SUN PHARMACEUTICAL INDUSTRIES LTD-2017RR-153857

PATIENT
  Age: 58 Year
  Weight: 90 kg

DRUGS (2)
  1. CIPROFLOXACIN. [Suspect]
     Active Substance: CIPROFLOXACIN
     Dosage: 500 MG
     Route: 048
     Dates: start: 20170830
  2. CIPROFLOXACIN. [Suspect]
     Active Substance: CIPROFLOXACIN
     Indication: BRONCHITIS
     Dosage: 500 MG
     Route: 048
     Dates: start: 20030401

REACTIONS (16)
  - Hypoaesthesia [Unknown]
  - Tendon rupture [Recovered/Resolved]
  - Muscular weakness [Recovered/Resolved with Sequelae]
  - Muscle atrophy [Recovered/Resolved with Sequelae]
  - Paraesthesia [Unknown]
  - Nerve injury [Unknown]
  - Dyspnoea [Recovered/Resolved]
  - Myalgia [Unknown]
  - Arthralgia [Unknown]
  - Visual field defect [Unknown]
  - Tinnitus [Unknown]
  - Visual impairment [Unknown]
  - Polyneuropathy [Not Recovered/Not Resolved]
  - Gastrooesophageal reflux disease [Unknown]
  - Condition aggravated [Unknown]
  - Dizziness [Unknown]

NARRATIVE: CASE EVENT DATE: 200305
